FAERS Safety Report 8516870-1 (Version None)
Quarter: 2012Q3

REPORT INFORMATION
  Report Type: 
  Country: None (occurrence: None)
  Receive Date: 20120718
  Receipt Date: 20120711
  Transmission Date: 20120928
  Serious: Yes (Hospitalization)
  Sender: FDA-Public Use
  Company Number: NL-SANOFI-AVENTIS-2012SA046438

PATIENT
  Age: 58 Year
  Sex: Female

DRUGS (4)
  1. ADRIAMYCIN PFS [Concomitant]
  2. TAXOTERE [Suspect]
     Route: 042
     Dates: start: 20120626
  3. CYCLOPHOSPHAMIDE [Concomitant]
  4. PEGFILGRASTIM [Concomitant]

REACTIONS (2)
  - PANCREATITIS [None]
  - LIPASE INCREASED [None]
